FAERS Safety Report 24756935 (Version 1)
Quarter: 2024Q4

REPORT INFORMATION
  Report Type: Spontaneous
  Country: US (occurrence: US)
  Receive Date: 20241220
  Receipt Date: 20241220
  Transmission Date: 20250114
  Serious: Yes (Hospitalization, Other)
  Sender: BRISTOL-MYERS SQUIBB COMPANY
  Company Number: US-CELGENE-USA-2017037168

PATIENT
  Age: 53 Year
  Sex: Female

DRUGS (5)
  1. REVLIMID [Suspect]
     Active Substance: LENALIDOMIDE
     Indication: Follicular lymphoma
     Dosage: 10 MILLIGRAM
     Route: 048
  2. RITUXIMAB [Suspect]
     Active Substance: RITUXIMAB
     Indication: Lymphoma
     Dosage: FREQUENCY TEXT: DAYS 8,15,22?375 MILLIGRAM/SQ. METER
     Route: 042
  3. RITUXIMAB [Suspect]
     Active Substance: RITUXIMAB
     Indication: Follicular lymphoma
     Dosage: FREQUENCY TEXT: CYCLE TWO?375 MILLIGRAM/SQ. METER
     Route: 042
  4. IDELALISIB [Suspect]
     Active Substance: IDELALISIB
     Indication: Lymphoma
     Dosage: 300 MILLIGRAM
     Route: 048
  5. IDELALISIB [Suspect]
     Active Substance: IDELALISIB
     Indication: Follicular lymphoma

REACTIONS (4)
  - Pyrexia [Unknown]
  - Face oedema [Unknown]
  - Rash [Unknown]
  - Hypotension [Unknown]
